FAERS Safety Report 18464341 (Version 1)
Quarter: 2020Q4

REPORT INFORMATION
  Report Type: Report from Study
  Country: FR (occurrence: FR)
  Receive Date: 20201104
  Receipt Date: 20201104
  Transmission Date: 20210114
  Serious: Yes (Hospitalization, Other)
  Sender: FDA-Public Use
  Company Number: FR-JAZZ-2017-FR-014867

PATIENT

DRUGS (12)
  1. IALUSET [Concomitant]
     Indication: SKIN STRIAE
     Dates: start: 20150706, end: 201509
  2. BACTRIM [Concomitant]
     Active Substance: SULFAMETHOXAZOLE\TRIMETHOPRIM
     Indication: ANTIBIOTIC THERAPY
     Dosage: 2400MG
     Route: 048
     Dates: start: 20150417, end: 20150924
  3. DOLIPRANE [Concomitant]
     Active Substance: ACETAMINOPHEN
     Indication: ANALGESIC THERAPY
  4. LASILIX [FUROSEMIDE] [Concomitant]
     Active Substance: FUROSEMIDE
     Indication: VENOOCCLUSIVE LIVER DISEASE
  5. DEFITELIO [Suspect]
     Active Substance: DEFIBROTIDE SODIUM
     Dosage: 25 MILLIGRAM/KILOGRAM, QD
     Route: 042
     Dates: start: 20150512, end: 20150624
  6. ZELITREX [Concomitant]
     Active Substance: VALACYCLOVIR HYDROCHLORIDE
     Indication: ANTIVIRAL TREATMENT
     Dosage: 1G
     Route: 048
     Dates: start: 20150315, end: 20160321
  7. FUROSEMIDE. [Concomitant]
     Active Substance: FUROSEMIDE
     Indication: DRUG THERAPY
     Dosage: 60MG
     Route: 048
     Dates: start: 20150506, end: 20150911
  8. DEFITELIO [Suspect]
     Active Substance: DEFIBROTIDE SODIUM
     Dosage: 300 MILLIGRAM, TID
     Route: 042
     Dates: start: 20150409, end: 2015
  9. DEFITELIO [Suspect]
     Active Substance: DEFIBROTIDE SODIUM
     Indication: VENOOCCLUSIVE LIVER DISEASE
     Dosage: 21.4 MILLIGRAM/KILOGRAM, QD
     Route: 042
     Dates: start: 20150330, end: 20150408
  10. AMOXICILLIN. [Concomitant]
     Active Substance: AMOXICILLIN
     Indication: ANTIBIOTIC THERAPY
     Dosage: 1G
     Route: 048
     Dates: start: 20150406, end: 201604
  11. DEFITELIO [Suspect]
     Active Substance: DEFIBROTIDE SODIUM
     Dosage: 300 MILLIGRAM, BID
     Route: 042
     Dates: start: 20150911
  12. HYDROCORTISONE. [Concomitant]
     Active Substance: HYDROCORTISONE
     Indication: STEROID THERAPY
     Dosage: 20 MG, QD
     Route: 048
     Dates: start: 20150504, end: 201605

REACTIONS (10)
  - Venoocclusive disease [Recovered/Resolved]
  - Colitis [Recovered/Resolved]
  - Graft versus host disease in skin [Unknown]
  - Hepatic steatosis [Unknown]
  - Cushing^s syndrome [Recovered/Resolved]
  - Hepatocellular injury [Unknown]
  - Adenovirus infection [Recovered/Resolved]
  - Acute graft versus host disease [Unknown]
  - Serum ferritin increased [Recovered/Resolved]
  - Bile duct stone [Unknown]

NARRATIVE: CASE EVENT DATE: 20150330
